FAERS Safety Report 9960566 (Version 1)
Quarter: 2014Q1

REPORT INFORMATION
  Report Type: Spontaneous
  Country: US (occurrence: None)
  Receive Date: 20140304
  Receipt Date: 20140304
  Transmission Date: 20141002
  Serious: Yes (Disabling)
  Sender: FDA-Public Use
  Company Number: None

PATIENT
  Age: 66 Year
  Sex: Female
  Weight: 53.52 kg

DRUGS (1)
  1. DOXYCYCLINE HYCLATE [Suspect]
     Indication: SINUSITIS
     Route: 048
     Dates: start: 20140129, end: 20140212

REACTIONS (1)
  - Tendonitis [None]
